FAERS Safety Report 10182097 (Version 2)
Quarter: 2014Q2

REPORT INFORMATION
  Report Type: Spontaneous
  Country: CH (occurrence: CH)
  Receive Date: 20140520
  Receipt Date: 20140520
  Transmission Date: 20141212
  Serious: Yes (Disabling)
  Sender: FDA-Public Use
  Company Number: CH-ROCHE-1380205

PATIENT
  Age: 78 Year
  Sex: Female

DRUGS (5)
  1. HERCEPTIN [Suspect]
     Indication: BREAST CANCER METASTATIC
     Route: 042
     Dates: start: 20130222, end: 20140328
  2. 5-FLUOROURACIL [Concomitant]
     Dosage: 2 CYCLES
     Route: 065
  3. DOCETAXEL [Concomitant]
     Dosage: 2 CYCLES
     Route: 065
  4. CARBOPLATIN [Concomitant]
     Dosage: 2 CYCLES
     Route: 065
  5. PACLITAXEL [Concomitant]
     Route: 065
     Dates: start: 201302, end: 201306

REACTIONS (2)
  - Papilloedema [Not Recovered/Not Resolved]
  - Blindness [Not Recovered/Not Resolved]
